FAERS Safety Report 11668557 (Version 1)
Quarter: 2015Q4

REPORT INFORMATION
  Report Type: Spontaneous
  Country: US (occurrence: US)
  Receive Date: 20151027
  Receipt Date: 20151027
  Transmission Date: 20160304
  Serious: No
  Sender: FDA-Public Use
  Company Number: US-ELI_LILLY_AND_COMPANY-US201001000408

PATIENT
  Sex: Female

DRUGS (2)
  1. FORTEO [Suspect]
     Active Substance: TERIPARATIDE
     Dosage: 20 UG, QOD
     Dates: start: 2010
  2. FORTEO [Suspect]
     Active Substance: TERIPARATIDE
     Indication: OSTEOPOROSIS
     Dosage: 20 UG, QOD
     Dates: start: 2008, end: 2010

REACTIONS (9)
  - Medication error [Unknown]
  - Injection site bruising [Unknown]
  - Injection site haemorrhage [Not Recovered/Not Resolved]
  - Gastric dilatation [Unknown]
  - Incorrect product storage [Unknown]
  - Neck pain [Not Recovered/Not Resolved]
  - Drug prescribing error [Unknown]
  - Fear [Unknown]
  - Abdominal hernia [Not Recovered/Not Resolved]

NARRATIVE: CASE EVENT DATE: 2008
